FAERS Safety Report 20923417 (Version 11)
Quarter: 2022Q4

REPORT INFORMATION
  Report Type: Report from Study
  Country: US (occurrence: None)
  Receive Date: 20220607
  Receipt Date: 20221011
  Transmission Date: 20230112
  Serious: Yes (Hospitalization)
  Sender: FDA-Public Use
  Company Number: US-Eisai Medical Research-EC-2022-116348

PATIENT
  Age: 65 Year
  Sex: Male
  Weight: 119.7 kg

DRUGS (16)
  1. LENVATINIB [Suspect]
     Active Substance: LENVATINIB
     Indication: Clear cell renal cell carcinoma
     Route: 048
     Dates: start: 20220518, end: 20220526
  2. LENVATINIB [Suspect]
     Active Substance: LENVATINIB
     Dosage: STARTING DOSE OF 20 MG, FLUCTUATED DOSAGE.
     Route: 048
     Dates: start: 20220609
  3. QUAVONLIMAB [Suspect]
     Active Substance: QUAVONLIMAB
     Indication: Clear cell renal cell carcinoma
     Dosage: QUAVONLIMAB (MK-1308) 25 MG (+) PEMBROLIZUMAB (MK-3475) 400 MG (MK-1308A)
     Route: 041
     Dates: start: 20220518, end: 20220518
  4. GLUCOSAMINE [Concomitant]
     Active Substance: GLUCOSAMINE
     Dates: start: 201201
  5. VITAMINS NOS [Concomitant]
     Active Substance: VITAMINS
     Dates: start: 201201
  6. OMEPRAZOLE [Concomitant]
     Active Substance: OMEPRAZOLE
     Dates: start: 201201, end: 20220518
  7. CRESTOR [Concomitant]
     Active Substance: ROSUVASTATIN CALCIUM
     Dates: start: 201602
  8. UBIQUINOL [Concomitant]
     Active Substance: UBIQUINOL
     Dates: start: 201602
  9. CYANOCOBALAMIN [Concomitant]
     Active Substance: CYANOCOBALAMIN
     Dates: start: 201701
  10. CHOLECALCIFEROL [Concomitant]
     Active Substance: CHOLECALCIFEROL
     Dates: start: 201701
  11. CLONAZEPAM [Concomitant]
     Active Substance: CLONAZEPAM
     Dates: start: 202007, end: 20220530
  12. AMLODIPINE [Concomitant]
     Active Substance: AMLODIPINE BESYLATE
     Dates: start: 20201105, end: 20220621
  13. ASPIRIN [Concomitant]
     Active Substance: ASPIRIN
     Dates: start: 202011
  14. VASCEPA [Concomitant]
     Active Substance: ICOSAPENT ETHYL
     Dates: start: 202204
  15. FAMOTIDINE [Concomitant]
     Active Substance: FAMOTIDINE
     Dates: start: 20220519
  16. PEMBROLIZUMAB [Suspect]
     Active Substance: PEMBROLIZUMAB

REACTIONS (1)
  - Rectal haemorrhage [Recovered/Resolved]

NARRATIVE: CASE EVENT DATE: 20220526
